FAERS Safety Report 14612321 (Version 1)
Quarter: 2018Q1

REPORT INFORMATION
  Report Type: Report from Study
  Country: SG (occurrence: JP)
  Receive Date: 20180308
  Receipt Date: 20180308
  Transmission Date: 20180509
  Serious: Yes (Other)
  Sender: FDA-Public Use
  Company Number: SG-CIPLA LTD.-2018JP10339

PATIENT

DRUGS (2)
  1. TS-1 [Suspect]
     Active Substance: GIMERACIL\OTERACIL\TEGAFUR
     Indication: GASTRIC CANCER
     Dosage: 80 MG/M2, DAILY FOR 21 DAYS EVERY 5 WEEKS
     Route: 048
  2. IRINOTECAN [Suspect]
     Active Substance: IRINOTECAN
     Indication: GASTRIC CANCER
     Dosage: 80 MG/M2, INFUSION ON DAYS 1 AND 15 EVERY 5 WEEKS
     Route: 042

REACTIONS (1)
  - Malignant neoplasm progression [Unknown]
